FAERS Safety Report 5725875-5 (Version None)
Quarter: 2008Q2

REPORT INFORMATION
  Report Type: 
  Country: None (occurrence: None)
  Receive Date: 20080430
  Receipt Date: 20080417
  Transmission Date: 20081010
  Serious: Yes (Other)
  Sender: FDA-Public Use
  Company Number: 2008009809

PATIENT
  Age: 64 Year
  Sex: Female
  Weight: 67.1 kg

DRUGS (3)
  1. BENADRYL [Suspect]
     Indication: PROPHYLAXIS
     Dosage: ONE TABLET ONCE A DAY, ORAL
     Route: 048
     Dates: start: 20080416, end: 20080417
  2. ALL OTHER THERAPEUTIC PRODUCTS (ALL OTHER THERAPEUTIC PRODUCTS) [Suspect]
  3. ESGIC (BUTALBITAL, CAFFEINE, PARACETAMOL) [Concomitant]

REACTIONS (2)
  - AMNESIA [None]
  - FATIGUE [None]
